FAERS Safety Report 23655681 (Version 1)
Quarter: 2024Q1

REPORT INFORMATION
  Report Type: Spontaneous
  Country: GR (occurrence: GR)
  Receive Date: 20240321
  Receipt Date: 20240321
  Transmission Date: 20240410
  Serious: Yes (Life-Threatening, Other)
  Sender: FDA-Public Use
  Company Number: None

PATIENT
  Age: 54 Year
  Sex: Male
  Weight: 80 kg

DRUGS (17)
  1. EBASTINE [Concomitant]
     Active Substance: EBASTINE
     Indication: General anaesthesia
     Dosage: 20 MG, BID
     Route: 065
  2. ICOSAPENT [Concomitant]
     Active Substance: ICOSAPENT
     Indication: General anaesthesia
     Dosage: 1000 MG
     Route: 065
  3. LACTATED RINGERS SOLUTION [Concomitant]
     Active Substance: CALCIUM CHLORIDE\POTASSIUM CHLORIDE\SODIUM CHLORIDE\SODIUM LACTATE
     Indication: General anaesthesia
     Dosage: 300 ML SOLUTION
     Route: 040
  4. CLOBAZAM [Interacting]
     Active Substance: CLOBAZAM
     Indication: Product used for unknown indication
     Dosage: 10 MG, QD
     Route: 065
  5. DEXMEDETOMIDINE [Interacting]
     Active Substance: DEXMEDETOMIDINE
     Indication: General anaesthesia
     Dosage: 1 UG/KG
     Route: 042
  6. DEXMEDETOMIDINE [Interacting]
     Active Substance: DEXMEDETOMIDINE
     Indication: General anaesthesia
     Dosage: LOADING DOSE: 1 MCG/KG, 10 MIN LATER MAINTENANCE DOSE: 0.4 MCG/KG/H
     Route: 042
  7. EZETIMIBE [Interacting]
     Active Substance: EZETIMIBE
     Indication: Dyslipidaemia
     Dosage: 10 MG, QD
     Route: 065
  8. FENTANYL [Interacting]
     Active Substance: FENTANYL\FENTANYL CITRATE
     Indication: General anaesthesia
     Dosage: 50 G/KG, QD
     Route: 065
  9. FENTANYL [Interacting]
     Active Substance: FENTANYL\FENTANYL CITRATE
     Indication: Analgesic therapy
  10. LEVETIRACETAM [Interacting]
     Active Substance: LEVETIRACETAM
     Indication: Product used for unknown indication
     Dosage: 1500 MG, Q12H
     Route: 065
  11. METFORMIN [Interacting]
     Active Substance: METFORMIN HYDROCHLORIDE
     Indication: Type 2 diabetes mellitus
     Dosage: 500 MG, Q12H
     Route: 065
  12. OMEPRAZOLE [Interacting]
     Active Substance: OMEPRAZOLE
     Indication: Product used for unknown indication
     Dosage: 20 MG, QD
     Route: 065
  13. OMEPRAZOLE [Interacting]
     Active Substance: OMEPRAZOLE
     Dosage: 20 MG, Q12H
     Route: 065
  14. OMEPRAZOLE [Interacting]
     Active Substance: OMEPRAZOLE
     Indication: Product used for unknown indication
     Dosage: 20 MG, BID
     Route: 065
  15. OXCARBAZEPINE [Interacting]
     Active Substance: OXCARBAZEPINE
     Indication: Product used for unknown indication
     Dosage: 400 MG, Q12H
     Route: 065
  16. PREGABALIN [Interacting]
     Active Substance: PREGABALIN
     Indication: General anaesthesia
     Dosage: 150 MG, Q8H
     Route: 065
  17. RISPERIDONE [Interacting]
     Active Substance: RISPERIDONE
     Indication: Product used for unknown indication
     Dosage: 2 MG, BID
     Route: 065

REACTIONS (6)
  - Bradycardia [Recovered/Resolved]
  - Cardiac arrest [Recovered/Resolved]
  - Blood pressure decreased [Recovered/Resolved]
  - Hypotension [Recovered/Resolved]
  - Drug interaction [Unknown]
  - Cardiac arrest [Recovered/Resolved]
